FAERS Safety Report 15782774 (Version 1)
Quarter: 2019Q1

REPORT INFORMATION
  Report Type: Spontaneous
  Country: FR (occurrence: FR)
  Receive Date: 20190102
  Receipt Date: 20190102
  Transmission Date: 20190417
  Serious: Yes (Hospitalization)
  Sender: FDA-Public Use
  Company Number: FR-PFIZER INC-2018533275

PATIENT
  Age: 15 Year
  Sex: Male

DRUGS (2)
  1. DESLORATADINE. [Suspect]
     Active Substance: DESLORATADINE
     Dosage: 3 DF, 1X/DAY
     Route: 048
     Dates: start: 20170327, end: 20170327
  2. XANAX [Suspect]
     Active Substance: ALPRAZOLAM
     Dosage: 16 DF, 1X/DAY
     Route: 048
     Dates: start: 20170327, end: 20170327

REACTIONS (3)
  - Suicide attempt [Recovered/Resolved]
  - Somnolence [Recovered/Resolved]
  - Toxicity to various agents [Recovered/Resolved]

NARRATIVE: CASE EVENT DATE: 20170327
